FAERS Safety Report 18789336 (Version 2)
Quarter: 2021Q1

REPORT INFORMATION
  Report Type: Report from Study
  Country: BR (occurrence: BR)
  Receive Date: 20210126
  Receipt Date: 20210319
  Transmission Date: 20210419
  Serious: Yes (Death, Life-Threatening, Hospitalization)
  Sender: FDA-Public Use
  Company Number: BR-JNJFOC-20210123387

PATIENT
  Age: 69 Year
  Sex: Male
  Weight: 67 kg

DRUGS (5)
  1. ERDAFITINIB. [Suspect]
     Active Substance: ERDAFITINIB
     Indication: TRANSITIONAL CELL CARCINOMA
     Dosage: MED KIT 145758
     Route: 048
     Dates: start: 20201113, end: 20210106
  2. DIPYRONE [Concomitant]
     Active Substance: DIPYRONE
     Indication: ARTHRALGIA
     Dates: start: 20201111, end: 20210111
  3. MAGNESIUM PIDOLATE [Concomitant]
     Active Substance: MAGNESIUM PIDOLATE
     Indication: CONSTIPATION PROPHYLAXIS
     Route: 065
     Dates: start: 20201130, end: 20210104
  4. MORPHINE [Concomitant]
     Active Substance: MORPHINE
     Indication: ARTHRALGIA
     Route: 065
     Dates: start: 20201111, end: 20210111
  5. GABAPENTIN. [Concomitant]
     Active Substance: GABAPENTIN
     Indication: ARTHRALGIA
     Route: 065
     Dates: start: 20201111, end: 20210116

REACTIONS (4)
  - Cardio-respiratory arrest [Recovered/Resolved]
  - Septic shock [Fatal]
  - Gastrointestinal haemorrhage [Recovering/Resolving]
  - Bronchial aspiration procedure [Recovering/Resolving]

NARRATIVE: CASE EVENT DATE: 20210107
